FAERS Safety Report 19429906 (Version 1)
Quarter: 2021Q2

REPORT INFORMATION
  Report Type: Spontaneous
  Country: GB (occurrence: GB)
  Receive Date: 20210617
  Receipt Date: 20210617
  Transmission Date: 20210717
  Serious: Yes (Other)
  Sender: FDA-Public Use
  Company Number: GB-BIO PRODUCTS LABORATORY LTD-2112832

PATIENT
  Age: 36 Year
  Sex: Male
  Weight: 73 kg

DRUGS (2)
  1. COVID?19 ASTRAZENECA VACCINE; 31/03/21; BATCH PW4008; DOSE 1 [Concomitant]
  2. HUMAN NORMAL IMMUNOGLOBULIN [Suspect]
     Active Substance: HUMAN IMMUNOGLOBULIN G

REACTIONS (1)
  - Abdominal pain upper [Recovering/Resolving]
